FAERS Safety Report 13945327 (Version 2)
Quarter: 2017Q3

REPORT INFORMATION
  Report Type: Spontaneous
  Country: US (occurrence: US)
  Receive Date: 20170907
  Receipt Date: 20170929
  Transmission Date: 20171128
  Serious: Yes (Other)
  Sender: FDA-Public Use
  Company Number: US-PFIZER INC-2017383227

PATIENT
  Age: 78 Year
  Sex: Female

DRUGS (1)
  1. LATANOPROST. [Suspect]
     Active Substance: LATANOPROST
     Indication: GLAUCOMA
     Dosage: 1 GTT, DAILY (INSTILL 1DROP INTO BOTH EYES DAILY AT BEDTIME)

REACTIONS (2)
  - Visual impairment [Unknown]
  - Drug ineffective [Unknown]
